FAERS Safety Report 19742662 (Version 1)
Quarter: 2021Q3

REPORT INFORMATION
  Report Type: Spontaneous
  Country: US (occurrence: US)
  Receive Date: 20210825
  Receipt Date: 20210825
  Transmission Date: 20211014
  Serious: Yes (Other)
  Sender: FDA-Public Use
  Company Number: US-SA-2021SA276835

PATIENT
  Sex: Female

DRUGS (1)
  1. DUPIXENT [Suspect]
     Active Substance: DUPILUMAB
     Indication: ASTHMA
     Dosage: UNK UNK, QOW
     Route: 058
     Dates: start: 20201124

REACTIONS (4)
  - Injection site erythema [Recovered/Resolved]
  - Injection site dryness [Recovered/Resolved]
  - Asthma [Recovered/Resolved]
  - Dementia Alzheimer^s type [Unknown]
